FAERS Safety Report 8872909 (Version 4)
Quarter: 2013Q2

REPORT INFORMATION
  Report Type: Report from Study
  Country: US (occurrence: US)
  Receive Date: 20121029
  Receipt Date: 20130605
  Transmission Date: 20140414
  Serious: Yes (Other)
  Sender: FDA-Public Use
  Company Number: US-US-EMD SERONO, INC.-7169788

PATIENT
  Sex: Male
  Weight: 79 kg

DRUGS (2)
  1. REBIF [Suspect]
     Indication: MULTIPLE SCLEROSIS
     Route: 058
     Dates: start: 20061024
  2. FISH OIL [Concomitant]
     Indication: VITAMIN SUPPLEMENTATION

REACTIONS (2)
  - Intracranial aneurysm [Recovered/Resolved]
  - Fatigue [Not Recovered/Not Resolved]
